FAERS Safety Report 4933954-5 (Version None)
Quarter: 2006Q1

REPORT INFORMATION
  Report Type: 
  Country: None (occurrence: None)
  Receive Date: 20060303
  Receipt Date: 20060223
  Transmission Date: 20060701
  Serious: Yes (Death)
  Sender: FDA-Public Use
  Company Number: GXKR2006NO01141

PATIENT
  Age: 82 Year
  Sex: Female

DRUGS (6)
  1. RIFAMPICIN [Suspect]
     Indication: TUBERCULOUS PLEURISY
     Dosage: 600 MG, ORAL
     Route: 048
     Dates: start: 20051213, end: 20060120
  2. ISONIAZID [Suspect]
     Indication: TUBERCULOUS PLEURISY
     Dosage: 600 MG, ORAL
     Route: 048
     Dates: start: 20051213, end: 20060120
  3. ALLOPUR (ALLOPURINOL) [Concomitant]
  4. PYRIDOXINE (PYRIDOXINE) [Concomitant]
  5. METOPROLOL SUCCINATE [Concomitant]
  6. COZAAR COMP (HYDROCHLOROTHIAZIDE, LOSARTAN POTASSIUM) [Concomitant]

REACTIONS (1)
  - HEPATORENAL SYNDROME [None]
